FAERS Safety Report 8408402-3 (Version None)
Quarter: 2012Q2

REPORT INFORMATION
  Report Type: 
  Country: None (occurrence: None)
  Receive Date: 20120604
  Receipt Date: 20111017
  Transmission Date: 20120825
  Serious: Yes (Hospitalization)
  Sender: FDA-Public Use
  Company Number: US-ROCHE-1074060

PATIENT
  Sex: Female

DRUGS (3)
  1. PEGASYS [Suspect]
     Indication: HEPATITIS C
     Route: 058
     Dates: start: 20110912
  2. COPEGUS [Suspect]
     Indication: HEPATITIS C
     Route: 048
     Dates: start: 20110912
  3. TELAPREVIR [Suspect]
     Indication: HEPATITIS C
     Dates: start: 20110912

REACTIONS (5)
  - WOUND COMPLICATION [None]
  - HYPOTENSION [None]
  - BLOOD URINE PRESENT [None]
  - TRANSFUSION [None]
  - WOUND DEHISCENCE [None]
